FAERS Safety Report 5010704-8 (Version None)
Quarter: 2006Q2

REPORT INFORMATION
  Report Type: 
  Country: None (occurrence: None)
  Receive Date: 20060525
  Receipt Date: 20060515
  Transmission Date: 20061013
  Serious: Yes (Other)
  Sender: FDA-Public Use
  Company Number: JP-BRISTOL-MYERS SQUIBB COMPANY-13388715

PATIENT
  Age: 51 Year
  Sex: Female

DRUGS (1)
  1. MITOMYCIN [Suspect]
     Route: 031

REACTIONS (1)
  - RETINAL HAEMORRHAGE [None]
